FAERS Safety Report 21440483 (Version 1)
Quarter: 2022Q4

REPORT INFORMATION
  Report Type: Spontaneous
  Country: US (occurrence: None)
  Receive Date: 20221009
  Receipt Date: 20221009
  Transmission Date: 20230113
  Serious: Yes (Hospitalization)
  Sender: FDA-Public Use
  Company Number: None

PATIENT
  Age: 81 Year
  Sex: Male
  Weight: 85.5 kg

DRUGS (7)
  1. RINVOQ [Suspect]
     Active Substance: UPADACITINIB
     Indication: Rheumatoid arthritis
     Dosage: FREQUENCY : DAILY;?
     Route: 048
     Dates: start: 20220326, end: 20220927
  2. ROSUVASTATIN CALCIUM [Suspect]
     Active Substance: ROSUVASTATIN CALCIUM
  3. LIPITOR [Concomitant]
     Active Substance: ATORVASTATIN CALCIUM
  4. BUPROPION [Concomitant]
     Active Substance: BUPROPION
  5. FOLIC ACID [Concomitant]
     Active Substance: FOLIC ACID
  6. TAMSULOSIN [Concomitant]
     Active Substance: TAMSULOSIN
  7. Metathextrate [Concomitant]

REACTIONS (4)
  - Dysstasia [None]
  - Blood creatine phosphokinase increased [None]
  - Therapy cessation [None]
  - Muscle atrophy [None]

NARRATIVE: CASE EVENT DATE: 20220927
